FAERS Safety Report 17811276 (Version 1)
Quarter: 2020Q2

REPORT INFORMATION
  Report Type: Spontaneous
  Country: US (occurrence: US)
  Receive Date: 20200520
  Receipt Date: 20200520
  Transmission Date: 20200714
  Serious: No
  Sender: FDA-Public Use
  Company Number: None

PATIENT
  Age: 59 Year
  Sex: Female
  Weight: 87.54 kg

DRUGS (1)
  1. OXYCODONE ACETAMINOPHEN TAB [Suspect]
     Active Substance: ACETAMINOPHEN\OXYCODONE HYDROCHLORIDE
     Dosage: ?          OTHER DOSE:10-325;OTHER FREQUENCY:1 TAB PO.Q8;?
     Route: 048

REACTIONS (2)
  - Urticaria [None]
  - Vomiting [None]

NARRATIVE: CASE EVENT DATE: 20181114
